FAERS Safety Report 9693164 (Version 3)
Quarter: 2014Q1

REPORT INFORMATION
  Report Type: Spontaneous
  Country: GB (occurrence: GB)
  Receive Date: 20131118
  Receipt Date: 20140213
  Transmission Date: 20141002
  Serious: Yes (Hospitalization, Other)
  Sender: FDA-Public Use
  Company Number: GB-NOVOPROD-391753

PATIENT
  Age: 47 Year
  Sex: Male
  Weight: 76.8 kg

DRUGS (4)
  1. NOVOMIX 30 FLEXPEN [Suspect]
     Indication: TYPE 1 DIABETES MELLITUS
     Dosage: 84 U, QD (48 U AM, 36U PM)
     Route: 058
     Dates: start: 20100816, end: 20130624
  2. NOVOMIX 30 FLEXPEN [Suspect]
     Dosage: UNK
     Route: 058
     Dates: end: 20131126
  3. NOVOMIX 30 PENFILL [Suspect]
     Indication: TYPE 1 DIABETES MELLITUS
     Route: 065
  4. RAMIPRIL [Concomitant]
     Dosage: 7.5 MG, QD
     Route: 065

REACTIONS (4)
  - Chest pain [Recovered/Resolved]
  - Head injury [Recovered/Resolved]
  - Hypoglycaemic unconsciousness [Recovered/Resolved]
  - Hypoglycaemic unconsciousness [Recovered/Resolved]
